FAERS Safety Report 6956811-1 (Version None)
Quarter: 2010Q3

REPORT INFORMATION
  Report Type: 
  Country: None (occurrence: None)
  Receive Date: 20100826
  Receipt Date: 20100817
  Transmission Date: 20110219
  Serious: Yes (Disabling)
  Sender: FDA-Public Use
  Company Number: 2009JP006352

PATIENT
  Age: 58 Year
  Sex: Female
  Weight: 44.8 kg

DRUGS (18)
  1. TACROLIMUS [Suspect]
     Indication: LUPUS NEPHRITIS
     Dosage: 1 MG, ORAL; 2 MG, ORAL
     Route: 048
     Dates: start: 20090702, end: 20090812
  2. TACROLIMUS [Suspect]
     Indication: LUPUS NEPHRITIS
     Dosage: 1 MG, ORAL; 2 MG, ORAL
     Route: 048
     Dates: start: 20090813, end: 20090826
  3. TACROLIMUS [Suspect]
     Indication: LUPUS NEPHRITIS
     Dosage: 1 MG, ORAL; 2 MG, ORAL
     Route: 048
     Dates: start: 20090827
  4. PREDNISOLONE [Suspect]
     Indication: LUPUS NEPHRITIS
     Dosage: SEE IMAGE
     Route: 048
     Dates: start: 20090702, end: 20090715
  5. PREDNISOLONE [Suspect]
     Indication: LUPUS NEPHRITIS
     Dosage: SEE IMAGE
     Route: 048
     Dates: start: 20090716, end: 20090729
  6. PREDNISOLONE [Suspect]
     Indication: LUPUS NEPHRITIS
     Dosage: SEE IMAGE
     Route: 048
     Dates: start: 20090730, end: 20090812
  7. PREDNISOLONE [Suspect]
     Indication: LUPUS NEPHRITIS
     Dosage: SEE IMAGE
     Route: 048
     Dates: start: 20090813, end: 20090923
  8. PREDNISOLONE [Suspect]
     Indication: LUPUS NEPHRITIS
     Dosage: SEE IMAGE
     Route: 048
     Dates: start: 20090924, end: 20091021
  9. PREDNISOLONE [Suspect]
     Indication: LUPUS NEPHRITIS
     Dosage: SEE IMAGE
     Route: 048
     Dates: start: 20091022, end: 20100127
  10. PREDNISOLONE [Suspect]
     Indication: LUPUS NEPHRITIS
     Dosage: SEE IMAGE
     Route: 048
     Dates: start: 20100128, end: 20100520
  11. PREDNISOLONE [Suspect]
     Indication: LUPUS NEPHRITIS
     Dosage: SEE IMAGE
     Route: 048
     Dates: start: 20100521
  12. ISOCLINE (CLOTIAZEPAM) PER ORAL NOS [Concomitant]
  13. MUCOSTA (REBAMIPIDE) PER ORAL NOS [Concomitant]
  14. DIOVAN [Concomitant]
  15. ACTONEL (RISEDRONATE SODIUM) PER ORAL NOS [Concomitant]
  16. VOGLIBOSE (VOGLIBOSE) PER ORAL NOS [Concomitant]
  17. GLUFAST (MITIGLINIDE CALCIUM) PER ORAL NOS [Concomitant]
  18. AMLODIN (AMLODIPINE BESILATE) FORMULATION UNKNOWN [Concomitant]

REACTIONS (2)
  - CHORIORETINOPATHY [None]
  - RENAL DISORDER [None]
